FAERS Safety Report 5900771-9 (Version None)
Quarter: 2008Q3

REPORT INFORMATION
  Report Type: 
  Country: None (occurrence: None)
  Receive Date: 20080929
  Receipt Date: 20080924
  Transmission Date: 20090109
  Serious: Yes (Life-Threatening, Hospitalization, Other)
  Sender: FDA-Public Use
  Company Number: GB-JNJFOC-20080800379

PATIENT
  Sex: Male
  Weight: 58.5 kg

DRUGS (3)
  1. CONCERTA [Suspect]
     Indication: ATTENTION DEFICIT/HYPERACTIVITY DISORDER
     Route: 048
  2. CONCERTA [Suspect]
     Indication: CONDUCT DISORDER
     Dosage: REDUCTION TO 18 MG AT SOME WEEKENDS
     Route: 048
  3. OMEPRAZOLE [Concomitant]
     Route: 065

REACTIONS (5)
  - AUTOIMMUNE HEPATITIS [None]
  - EPISTAXIS [None]
  - PORTAL HYPERTENSIVE GASTROPATHY [None]
  - SCLERAL DISCOLOURATION [None]
  - VARICES OESOPHAGEAL [None]
